FAERS Safety Report 17477182 (Version 3)
Quarter: 2020Q2

REPORT INFORMATION
  Report Type: Report from Study
  Country: CA (occurrence: CA)
  Receive Date: 20200228
  Receipt Date: 20200603
  Transmission Date: 20200713
  Serious: Yes (Other)
  Sender: FDA-Public Use
  Company Number: CA-JNJFOC-20190923767

PATIENT
  Age: 33 Year
  Sex: Female

DRUGS (3)
  1. STELARA [Suspect]
     Active Substance: USTEKINUMAB
     Indication: CROHN^S DISEASE
     Route: 058
     Dates: start: 20150911
  2. PREDNISONE. [Concomitant]
     Active Substance: PREDNISONE
     Indication: PRODUCT USED FOR UNKNOWN INDICATION
     Route: 065
  3. STELARA [Suspect]
     Active Substance: USTEKINUMAB
     Route: 058

REACTIONS (3)
  - Nasopharyngitis [Recovering/Resolving]
  - Fistula [Not Recovered/Not Resolved]
  - Anal abscess [Not Recovered/Not Resolved]

NARRATIVE: CASE EVENT DATE: 20190907
